FAERS Safety Report 6360382-0 (Version None)
Quarter: 2009Q3

REPORT INFORMATION
  Report Type: 
  Country: None (occurrence: None)
  Receive Date: 20090917
  Receipt Date: 20090908
  Transmission Date: 20100115
  Serious: Yes (Other)
  Sender: FDA-Public Use
  Company Number: US-PFIZER INC-2009266228

PATIENT
  Sex: Male
  Weight: 95.254 kg

DRUGS (1)
  1. DEPO-MEDROL [Suspect]
     Indication: RADICULAR PAIN
     Dosage: UNK
     Route: 008
     Dates: start: 20080101, end: 20090801

REACTIONS (3)
  - MIGRAINE [None]
  - PAIN [None]
  - SURGERY [None]
